FAERS Safety Report 4620010-9 (Version None)
Quarter: 2005Q1

REPORT INFORMATION
  Report Type: 
  Country: None (occurrence: None)
  Receive Date: 20050328
  Receipt Date: 20050223
  Transmission Date: 20050727
  Serious: Yes (Hospitalization)
  Sender: FDA-Public Use
  Company Number: FR-BRISTOL-MYERS SQUIBB COMPANY-12873311

PATIENT
  Age: 56 Year
  Sex: Female

DRUGS (2)
  1. COAPROVEL [Suspect]
     Indication: HYPERTENSION
     Route: 048
     Dates: end: 20031027
  2. KETEK [Suspect]
     Indication: SINUSITIS
     Dates: start: 20030801

REACTIONS (4)
  - EYELID PTOSIS [None]
  - IIIRD NERVE PARALYSIS [None]
  - MYASTHENIC SYNDROME [None]
  - SINUSITIS [None]
